FAERS Safety Report 6509844-3 (Version None)
Quarter: 2009Q4

REPORT INFORMATION
  Report Type: 
  Country: None (occurrence: None)
  Receive Date: 20091217
  Receipt Date: 20091204
  Transmission Date: 20100525
  Serious: Yes (Life-Threatening, Hospitalization)
  Sender: FDA-Public Use
  Company Number: 2009-00066

PATIENT
  Age: 26 Year
  Sex: Female

DRUGS (1)
  1. VALPROIC ACID [Suspect]
     Indication: DRUG USE FOR UNKNOWN INDICATION

REACTIONS (16)
  - ALANINE AMINOTRANSFERASE INCREASED [None]
  - BASE EXCESS [None]
  - BLOOD ALBUMIN INCREASED [None]
  - BLOOD COUNT ABNORMAL [None]
  - BLOOD LACTIC ACID DECREASED [None]
  - BLOOD POTASSIUM DECREASED [None]
  - BLOOD PRESSURE DIASTOLIC DECREASED [None]
  - BODY TEMPERATURE DECREASED [None]
  - BRAIN OEDEMA [None]
  - COMA [None]
  - CONTINUOUS HAEMODIAFILTRATION [None]
  - GRAND MAL CONVULSION [None]
  - HEART RATE INCREASED [None]
  - OVERDOSE [None]
  - PO2 INCREASED [None]
  - RESPIRATORY RATE INCREASED [None]
